FAERS Safety Report 9699239 (Version 1)
Quarter: 2013Q4

REPORT INFORMATION
  Report Type: Spontaneous
  Country: US (occurrence: US)
  Receive Date: 20131120
  Receipt Date: 20131120
  Transmission Date: 20140711
  Serious: No
  Sender: FDA-Public Use
  Company Number: US-GILEAD-2008-0015224

PATIENT
  Age: 60 Year
  Sex: Female
  Weight: 68.38 kg

DRUGS (11)
  1. LETAIRIS [Suspect]
     Indication: PULMONARY ARTERIAL HYPERTENSION
     Route: 048
     Dates: start: 20080103
  2. LETAIRIS [Suspect]
     Route: 048
     Dates: start: 20071020, end: 20080102
  3. BUMETANIDE [Concomitant]
     Indication: FLUID RETENTION
     Route: 048
  4. METOLAZONE [Concomitant]
     Indication: ESSENTIAL HYPERTENSION
     Route: 048
  5. METFORMIN [Concomitant]
     Indication: TYPE 2 DIABETES MELLITUS
     Route: 048
  6. GLYBURIDE [Concomitant]
     Indication: TYPE 2 DIABETES MELLITUS
     Route: 048
  7. PROZAC [Concomitant]
     Indication: DEPRESSION
     Route: 048
  8. TRAZODONE [Concomitant]
     Indication: DEPRESSION
     Route: 048
  9. VICODIN [Concomitant]
     Indication: PAIN
     Route: 048
  10. LOVASTATIN [Concomitant]
     Indication: HYPERCHOLESTEROLAEMIA
     Route: 048
  11. KCL [Concomitant]
     Indication: NUTRITIONAL SUPPLEMENTATION
     Route: 048

REACTIONS (2)
  - Dyspnoea [Not Recovered/Not Resolved]
  - Palpitations [Not Recovered/Not Resolved]
